FAERS Safety Report 9918464 (Version 1)
Quarter: 2014Q1

REPORT INFORMATION
  Report Type: Spontaneous
  Country: US (occurrence: US)
  Receive Date: 20140224
  Receipt Date: 20140224
  Transmission Date: 20141002
  Serious: No
  Sender: FDA-Public Use
  Company Number: US-BIOGENIDEC-2014BI005719

PATIENT
  Age: 63 Year
  Sex: Female

DRUGS (15)
  1. TECFIDERA [Suspect]
     Indication: PRODUCT USED FOR UNKNOWN INDICATION
     Route: 048
  2. TECFIDERA [Suspect]
     Indication: PRODUCT USED FOR UNKNOWN INDICATION
     Route: 048
  3. TECFIDERA [Suspect]
     Indication: PRODUCT USED FOR UNKNOWN INDICATION
     Route: 048
     Dates: end: 20140112
  4. TECFIDERA [Suspect]
     Indication: PRODUCT USED FOR UNKNOWN INDICATION
     Dates: start: 20131202, end: 20140131
  5. TECFIDERA [Suspect]
     Indication: PRODUCT USED FOR UNKNOWN INDICATION
     Dates: start: 20131202, end: 20140105
  6. BACLOFEN [Concomitant]
  7. CYMBALTA [Concomitant]
  8. POLYETHYLENE GLYCOL [Concomitant]
  9. TYLENOL [Concomitant]
  10. VITAMIN D3 [Concomitant]
  11. CALCIUM [Concomitant]
  12. NAPROXEN [Concomitant]
  13. FERROUS SULFATE [Concomitant]
  14. AVONEX [Concomitant]
     Route: 030
     Dates: start: 20060725, end: 20131202
  15. AVONEX [Concomitant]
     Route: 030
     Dates: start: 20060725

REACTIONS (3)
  - Nausea [Recovered/Resolved]
  - Vomiting [Recovered/Resolved]
  - Muscle rupture [Not Recovered/Not Resolved]
